FAERS Safety Report 21861755 (Version 3)
Quarter: 2023Q1

REPORT INFORMATION
  Report Type: Spontaneous
  Country: ES (occurrence: ES)
  Receive Date: 20230113
  Receipt Date: 20230207
  Transmission Date: 20230418
  Serious: Yes (Other)
  Sender: FDA-Public Use
  Company Number: ES-BAYER-2023P001239

PATIENT
  Age: 67 Year
  Sex: Female

DRUGS (1)
  1. NEXAVAR [Suspect]
     Active Substance: SORAFENIB
     Indication: Angiosarcoma
     Dosage: UNK
     Dates: start: 202207

REACTIONS (10)
  - Soft tissue neoplasm [None]
  - General physical health deterioration [None]
  - Cholecystitis acute [Recovered/Resolved]
  - Abdominal pain upper [Recovered/Resolved]
  - Gallbladder enlargement [None]
  - Blood pressure increased [Recovered/Resolved]
  - Peritoneal disorder [None]
  - Off label use [None]
  - Inflammation [None]
  - Abdominal pain upper [None]
